FAERS Safety Report 7529440-9 (Version None)
Quarter: 2011Q2

REPORT INFORMATION
  Report Type: 
  Country: None (occurrence: None)
  Receive Date: 20110531
  Receipt Date: 20110517
  Transmission Date: 20111010
  Serious: Yes (Life-Threatening, Hospitalization)
  Sender: FDA-Public Use
  Company Number: 2011MA006012

PATIENT
  Age: 47 Year
  Sex: Female

DRUGS (4)
  1. TACROLIMUS [Concomitant]
  2. MYCOPHENOLATE MEFETIL [Concomitant]
  3. SULFATRIM PEDIATRIC [Suspect]
     Indication: RESPIRATORY TRACT INFECTION
  4. PREDNISONE [Concomitant]

REACTIONS (5)
  - COUGH [None]
  - OXYGEN SATURATION DECREASED [None]
  - WEIGHT DECREASED [None]
  - HYPOTENSION [None]
  - BLOOD CREATININE INCREASED [None]
